FAERS Safety Report 17447416 (Version 1)
Quarter: 2020Q1

REPORT INFORMATION
  Report Type: Report from Study
  Country: BE (occurrence: BE)
  Receive Date: 20200221
  Receipt Date: 20200221
  Transmission Date: 20200409
  Serious: Yes (Death)
  Sender: FDA-Public Use
  Company Number: NVSC2020BE046760

PATIENT
  Sex: Male

DRUGS (1)
  1. SANDOSTATINE LAR [Suspect]
     Active Substance: OCTREOTIDE ACETATE
     Indication: NEUROENDOCRINE TUMOUR
     Dosage: 30 MG
     Route: 030
     Dates: start: 20181001

REACTIONS (1)
  - Death [Fatal]

NARRATIVE: CASE EVENT DATE: 20200205
